FAERS Safety Report 7418060-2 (Version None)
Quarter: 2011Q2

REPORT INFORMATION
  Report Type: 
  Country: None (occurrence: None)
  Receive Date: 20110415
  Receipt Date: 20110404
  Transmission Date: 20111010
  Serious: Yes (Other)
  Sender: FDA-Public Use
  Company Number: NL-JNJFOC-20101207793

PATIENT
  Sex: Female

DRUGS (6)
  1. FOLIC ACID [Concomitant]
  2. INFLIXIMAB, RECOMBINANT [Suspect]
     Indication: RHEUMATOID ARTHRITIS
     Route: 042
  3. INFLIXIMAB, RECOMBINANT [Suspect]
     Route: 042
  4. CALCICHEW D3 [Concomitant]
     Indication: OSTEOPOROSIS
  5. METHOTREXATE [Suspect]
     Indication: RHEUMATOID ARTHRITIS
  6. NAPROXEN [Concomitant]
     Indication: PAIN

REACTIONS (1)
  - SPINDLE CELL SARCOMA [None]
